FAERS Safety Report 11335539 (Version 1)
Quarter: 2015Q3

REPORT INFORMATION
  Report Type: Spontaneous
  Country: US (occurrence: None)
  Receive Date: 20150731
  Receipt Date: 20150731
  Transmission Date: 20151125
  Serious: Yes (Hospitalization)
  Sender: FDA-Public Use
  Company Number: None

PATIENT
  Age: 76 Year
  Sex: Male
  Weight: 88 kg

DRUGS (18)
  1. RUXOLITINIB 5 MG TABS [Suspect]
     Active Substance: RUXOLITINIB
     Indication: CHRONIC MYELOID LEUKAEMIA
     Route: 048
     Dates: start: 20150616, end: 20150724
  2. POLYETHYLENE GLYCOL [Concomitant]
     Active Substance: POLYETHYLENE GLYCOLS
  3. SERTRALINE [Concomitant]
     Active Substance: SERTRALINE HYDROCHLORIDE
  4. SIMVASTATIN. [Concomitant]
     Active Substance: SIMVASTATIN
  5. VITAMIN B12-FOLIC ACID [Concomitant]
  6. CELECOXIB. [Concomitant]
     Active Substance: CELECOXIB
  7. ACETAMINOPHEN. [Concomitant]
     Active Substance: ACETAMINOPHEN
  8. FLUTICASONE [Concomitant]
     Active Substance: FLUTICASONE\FLUTICASONE PROPIONATE
  9. FUROSEMIDE. [Concomitant]
     Active Substance: FUROSEMIDE
  10. MULTIVITAMIN [Concomitant]
     Active Substance: VITAMINS
  11. TAMULOSIN [Concomitant]
     Active Substance: TAMSULOSIN
  12. HYDROMORPHINE [Concomitant]
     Active Substance: HYDROMORPHONE
  13. ALLOPURINOL. [Concomitant]
     Active Substance: ALLOPURINOL
  14. FINASTERIDE. [Concomitant]
     Active Substance: FINASTERIDE
  15. TOLTERODINE [Concomitant]
     Active Substance: TOLTERODINE
  16. ALBUTEROL. [Concomitant]
     Active Substance: ALBUTEROL
  17. LOPERAMIDE [Concomitant]
     Active Substance: LOPERAMIDE
  18. POTASSIUM CHLORIDE. [Concomitant]
     Active Substance: POTASSIUM CHLORIDE

REACTIONS (1)
  - Muscular weakness [None]

NARRATIVE: CASE EVENT DATE: 20150724
